FAERS Safety Report 7418188-7 (Version None)
Quarter: 2011Q2

REPORT INFORMATION
  Report Type: 
  Country: None (occurrence: None)
  Receive Date: 20110415
  Receipt Date: 20110411
  Transmission Date: 20111010
  Serious: Yes (Death)
  Sender: FDA-Public Use
  Company Number: US-AMGEN-USASP2011019400

PATIENT
  Age: 51 Year
  Sex: Male

DRUGS (5)
  1. NPLATE [Suspect]
     Indication: IDIOPATHIC THROMBOCYTOPENIC PURPURA
     Dosage: UNK MG/KG, UNK
     Dates: start: 20101016, end: 20101016
  2. CORTICOSTEROIDS [Concomitant]
  3. CYCLOPHOSPHAMIDE [Concomitant]
  4. IVIGLOB-EX [Concomitant]
  5. RITUXIMAB [Concomitant]

REACTIONS (1)
  - HAEMORRHAGE INTRACRANIAL [None]
